FAERS Safety Report 5030315-8 (Version None)
Quarter: 2006Q2

REPORT INFORMATION
  Report Type: 
  Country: None (occurrence: None)
  Receive Date: 20060614
  Receipt Date: 20060605
  Transmission Date: 20061013
  Serious: Yes (Hospitalization)
  Sender: FDA-Public Use
  Company Number: L06-USA-02193-01

PATIENT
  Age: 23 Year
  Sex: Female

DRUGS (5)
  1. ESCITALOPRAM OXALATE [Suspect]
     Indication: BIPOLAR I DISORDER
  2. METHYLPHENIDATE HCL [Suspect]
     Indication: BIPOLAR I DISORDER
  3. VENLAFAXINE HCL [Suspect]
     Indication: BIPOLAR I DISORDER
  4. LAMOTRIGINE [Concomitant]
  5. GABAPENTIN [Concomitant]

REACTIONS (3)
  - DRUG INTERACTION [None]
  - SEROTONIN SYNDROME [None]
  - THERAPEUTIC RESPONSE DECREASED [None]
